FAERS Safety Report 8942435 (Version 2)
Quarter: 2013Q1

REPORT INFORMATION
  Report Type: Spontaneous
  Country: IT (occurrence: IT)
  Receive Date: 20121204
  Receipt Date: 20130108
  Transmission Date: 20140127
  Serious: Yes (Hospitalization)
  Sender: FDA-Public Use
  Company Number: IT-PFIZER INC-2012300191

PATIENT
  Age: 64 Year
  Sex: Male

DRUGS (4)
  1. ARACYTIN [Suspect]
     Indication: ACUTE MYELOID LEUKAEMIA
     Dosage: 100 MG/M2, 1X/DAY
     Route: 042
     Dates: start: 20120309, end: 20120312
  2. DAUNOBLASTINA [Concomitant]
     Indication: ACUTE MYELOID LEUKAEMIA
     Dosage: 40 MG/M2, UNK
     Route: 042
     Dates: start: 20120309, end: 20120311
  3. ONCO-CARBIDE [Concomitant]
     Dosage: UNK
  4. ETOPOSIDE-TEVA [Concomitant]
     Indication: ACUTE MYELOID LEUKAEMIA
     Dosage: 200 MG, UNK
     Route: 042
     Dates: start: 20120203, end: 20120203

REACTIONS (2)
  - Renal failure acute [Recovered/Resolved]
  - Tumour lysis syndrome [Recovered/Resolved]
